FAERS Safety Report 4812570-X (Version None)
Quarter: 2005Q4

REPORT INFORMATION
  Report Type: 
  Country: None (occurrence: None)
  Receive Date: 20051028
  Receipt Date: 20041101
  Transmission Date: 20060501
  Serious: No
  Sender: FDA-Public Use
  Company Number: US-GLAXOSMITHKLINE-A0532023A

PATIENT
  Age: 57 Year
  Sex: Male

DRUGS (13)
  1. ADVAIR DISKUS 100/50 [Suspect]
     Indication: DRUG USE FOR UNKNOWN INDICATION
     Route: 055
     Dates: start: 20021101
  2. COMBIVENT [Concomitant]
  3. BENICAR [Concomitant]
  4. COREG [Concomitant]
  5. GEMFIBROZIL [Concomitant]
  6. AMITRIPTYLINE HCL [Concomitant]
  7. PREDNISONE [Concomitant]
  8. ALOPURINOL [Concomitant]
  9. COLCHICINE [Concomitant]
  10. TORSEMIDE [Concomitant]
  11. ZOCOR [Concomitant]
  12. NOVOLOG [Concomitant]
  13. LANTUS [Concomitant]

REACTIONS (2)
  - DYSPNOEA [None]
  - PHARMACEUTICAL PRODUCT COMPLAINT [None]
